FAERS Safety Report 14413655 (Version 3)
Quarter: 2018Q2

REPORT INFORMATION
  Report Type: Report from Study
  Country: US (occurrence: US)
  Receive Date: 20180119
  Receipt Date: 20180409
  Transmission Date: 20180711
  Serious: Yes (Death, Hospitalization)
  Sender: FDA-Public Use
  Company Number: US-ACTELION-A-NJ2018-166055

PATIENT
  Age: 4 Year
  Sex: Male

DRUGS (19)
  1. ALDACTONE [Concomitant]
     Active Substance: SPIRONOLACTONE
     Dosage: 15 MG, BID
  2. CHOLECALCIFEROL [Concomitant]
     Active Substance: CHOLECALCIFEROL
     Dosage: 2 ML, QD
     Route: 048
  3. BUDESONIDE. [Concomitant]
     Active Substance: BUDESONIDE
     Dosage: 6 MG, QD
     Route: 048
  4. SOTYLIZE [Concomitant]
     Active Substance: SOTALOL HYDROCHLORIDE
     Dosage: 4 ML, TID
     Route: 048
  5. VITAMIN D3 [Concomitant]
     Active Substance: CHOLECALCIFEROL
  6. INSULIN [Concomitant]
     Active Substance: INSULIN NOS
     Dosage: UNK, QD
     Route: 058
  7. FUROSEMIDE. [Concomitant]
     Active Substance: FUROSEMIDE
     Dosage: 3 ML, TID
     Route: 048
  8. MAG OXIDE [Concomitant]
     Active Substance: MAGNESIUM OXIDE
     Dosage: 400 MG, UNK
     Dates: start: 20170524, end: 20170723
  9. DIURIL [Concomitant]
     Active Substance: CHLOROTHIAZIDE
     Dosage: 250/5 ML
     Dates: start: 20170525, end: 20170724
  10. TRACLEER [Suspect]
     Active Substance: BOSENTAN
     Indication: PULMONARY HYPERTENSION
     Dosage: DISSOLVE 1/2 OF 62.5 TAB IN 10 ML WATER, GIVE 5 ML X 4 WEEKSN, THEN 5 ML BID
     Route: 048
  11. TRACLEER [Suspect]
     Active Substance: BOSENTAN
     Dosage: 15.6 MG, BID
     Route: 048
     Dates: start: 20170710
  12. MULTIVITAMIN [Concomitant]
     Active Substance: VITAMINS
  13. ALDACTONE [Concomitant]
     Active Substance: SPIRONOLACTONE
     Dosage: 20 MG, BID
     Route: 048
  14. SILDENAFIL. [Concomitant]
     Active Substance: SILDENAFIL
     Dosage: 9 ML, TID
     Route: 048
  15. AMOXICILLIN. [Concomitant]
     Active Substance: AMOXICILLIN
     Route: 048
  16. ENOXAPARIN [Concomitant]
     Active Substance: ENOXAPARIN
     Dosage: 0.22 ML, QD
     Route: 058
  17. OXYGEN. [Concomitant]
     Active Substance: OXYGEN
  18. LEVOTHYROXINE. [Concomitant]
     Active Substance: LEVOTHYROXINE
     Dosage: 62.5 MCG, QAM
     Route: 048
  19. EPANED [Concomitant]
     Active Substance: ENALAPRIL MALEATE
     Dosage: 1 MG/ML, UNK
     Dates: start: 20170517, end: 20170716

REACTIONS (9)
  - Acute respiratory failure [Recovering/Resolving]
  - Death [Fatal]
  - Respiratory distress [Unknown]
  - Atelectasis [Unknown]
  - Hypokalaemia [Recovering/Resolving]
  - Cough [Not Recovered/Not Resolved]
  - Oxygen therapy [Unknown]
  - Pleural effusion [Unknown]
  - Cardiac disorder [Not Recovered/Not Resolved]

NARRATIVE: CASE EVENT DATE: 20180107
